FAERS Safety Report 9099528 (Version 2)
Quarter: 2013Q1

REPORT INFORMATION
  Report Type: Report from Study
  Country: CA (occurrence: CA)
  Receive Date: 20130214
  Receipt Date: 20130329
  Transmission Date: 20140127
  Serious: Yes (Other)
  Sender: FDA-Public Use
  Company Number: CA-JNJFOC-20130202843

PATIENT
  Sex: Female
  Weight: 76.2 kg

DRUGS (1)
  1. SIMPONI [Suspect]
     Indication: RHEUMATOID ARTHRITIS
     Dates: start: 20100301

REACTIONS (1)
  - Squamous cell carcinoma of the vulva [Unknown]
